FAERS Safety Report 22203769 (Version 1)
Quarter: 2023Q2

REPORT INFORMATION
  Report Type: Spontaneous
  Country: US (occurrence: US)
  Receive Date: 20230412
  Receipt Date: 20230412
  Transmission Date: 20230722
  Serious: Yes (Life-Threatening, Hospitalization, Other)
  Sender: FDA-Public Use
  Company Number: US-MLMSERVICE-20191004-1988843-1

PATIENT
  Age: 25 Year
  Sex: Female

DRUGS (1)
  1. IMODIUM [Suspect]
     Active Substance: LOPERAMIDE HYDROCHLORIDE
     Indication: Drug withdrawal syndrome
     Route: 048

REACTIONS (7)
  - Depression [Unknown]
  - Ophthalmoplegia [Unknown]
  - Blood creatinine increased [Unknown]
  - Drug level above therapeutic [Unknown]
  - Tachycardia [Recovered/Resolved]
  - Off label use [Unknown]
  - Product use in unapproved indication [Unknown]
